FAERS Safety Report 8576802-7 (Version None)
Quarter: 2012Q3

REPORT INFORMATION
  Report Type: 
  Country: None (occurrence: None)
  Receive Date: 20120807
  Receipt Date: 20120801
  Transmission Date: 20120928
  Serious: Yes (Hospitalization)
  Sender: FDA-Public Use
  Company Number: US-AMGEN-US240765

PATIENT
  Age: 70 Year
  Sex: Male

DRUGS (4)
  1. NEULASTA [Concomitant]
     Dosage: 6 MG, UNK
     Route: 058
     Dates: start: 20070821, end: 20070821
  2. DOCETAXEL [Concomitant]
     Indication: SQUAMOUS CELL CARCINOMA
     Dosage: UNK UNK, UNK
     Route: 042
     Dates: start: 20070820
  3. PANITUMUMAB [Suspect]
     Indication: SQUAMOUS CELL CARCINOMA
     Dosage: 630 MG, Q3WK
     Route: 042
     Dates: start: 20070820, end: 20070820
  4. CISPLATIN [Concomitant]
     Indication: SQUAMOUS CELL CARCINOMA
     Dosage: UNK
     Route: 042
     Dates: start: 20070820

REACTIONS (7)
  - ELECTROLYTE IMBALANCE [None]
  - URINARY TRACT INFECTION [None]
  - DEHYDRATION [None]
  - NEUTROPENIC SEPSIS [None]
  - ATRIAL FIBRILLATION [None]
  - PNEUMONIA KLEBSIELLA [None]
  - PANCYTOPENIA [None]
